FAERS Safety Report 10075323 (Version 1)
Quarter: 2014Q2

REPORT INFORMATION
  Report Type: Spontaneous
  Country: US (occurrence: US)
  Receive Date: 20140414
  Receipt Date: 20140414
  Transmission Date: 20141212
  Serious: No
  Sender: FDA-Public Use
  Company Number: US-BIOGENIDEC-2014BI030952

PATIENT
  Age: 30 Year
  Sex: Female

DRUGS (10)
  1. TECFIDERA [Suspect]
     Indication: MULTIPLE SCLEROSIS
     Route: 048
     Dates: start: 201403
  2. TECFIDERA [Suspect]
     Indication: MULTIPLE SCLEROSIS
     Route: 048
  3. BACLOFEN [Concomitant]
  4. GABAPENTIN [Concomitant]
  5. BIAXIN [Concomitant]
  6. ABILIFY [Concomitant]
  7. ZOLOFT [Concomitant]
  8. DIAZEPAM [Concomitant]
  9. TRAZODONE [Concomitant]
  10. ESTRADIOL [Concomitant]

REACTIONS (2)
  - Fatigue [Unknown]
  - Diarrhoea [Unknown]
